FAERS Safety Report 8980506 (Version 1)
Quarter: 2012Q4

REPORT INFORMATION
  Report Type: 
  Country: US (occurrence: US)
  Receive Date: 20121221
  Receipt Date: 20121221
  Transmission Date: 20130627
  Serious: No
  Sender: FDA-Public Use
  Company Number: US-TEVA-374530USA

PATIENT
  Age: 50 Year
  Sex: Female
  Weight: 49.03 kg

DRUGS (1)
  1. PROAIR HFA [Suspect]
     Indication: BRONCHITIS
     Dosage: PRN
     Route: 055
     Dates: start: 20121203

REACTIONS (1)
  - Drug ineffective [Recovered/Resolved]
